FAERS Safety Report 14074197 (Version 11)
Quarter: 2024Q4

REPORT INFORMATION
  Report Type: Report from Study
  Country: US (occurrence: US)
  Receive Date: 20171011
  Receipt Date: 20241003
  Transmission Date: 20250115
  Serious: Yes (Other)
  Sender: JAZZ
  Company Number: US-JAZZ-2017-US-012237

PATIENT
  Sex: Female

DRUGS (23)
  1. XYREM [Suspect]
     Active Substance: SODIUM OXYBATE
     Indication: Narcolepsy
     Dosage: 2 G, BID
     Route: 048
     Dates: start: 201702, end: 201702
  2. XYREM [Suspect]
     Active Substance: SODIUM OXYBATE
     Indication: Cataplexy
     Dosage: DOSE ADJUSTMENT
     Route: 048
     Dates: start: 201702, end: 201708
  3. XYREM [Suspect]
     Active Substance: SODIUM OXYBATE
     Indication: Somnolence
     Dosage: 4.25 G, BID
     Route: 048
     Dates: start: 201708, end: 20170917
  4. XYREM [Suspect]
     Active Substance: SODIUM OXYBATE
     Dosage: 3.75 G, QD
     Route: 048
     Dates: start: 2017
  5. XYREM [Suspect]
     Active Substance: SODIUM OXYBATE
     Dosage: 4 G, QD
     Route: 048
     Dates: start: 2017
  6. BACLOFEN [Suspect]
     Active Substance: BACLOFEN
     Indication: Migraine
  7. IRON [Suspect]
     Active Substance: IRON
     Indication: Iron deficiency
     Dosage: 4G, BID
     Route: 048
     Dates: start: 2017
  8. IRON [Suspect]
     Active Substance: IRON
     Dosage: 2G, BID
     Route: 048
     Dates: start: 201701, end: 201702
  9. IRON [Suspect]
     Active Substance: IRON
     Dosage: UNK
     Route: 048
     Dates: start: 201702, end: 201708
  10. IRON [Suspect]
     Active Substance: IRON
     Dosage: 4.25G, BID
     Route: 048
     Dates: start: 201708, end: 20170917
  11. MAGNESIUM OXIDE [Concomitant]
     Active Substance: MAGNESIUM OXIDE
  12. ASCORBIC ACID [Concomitant]
     Active Substance: ASCORBIC ACID
  13. FENUGREEK LEAF\HERBALS [Concomitant]
     Active Substance: FENUGREEK LEAF\HERBALS
  14. NUVIGIL [Concomitant]
     Active Substance: ARMODAFINIL
  15. TIZANIDINE HYDROCHLORIDE [Concomitant]
     Active Substance: TIZANIDINE HYDROCHLORIDE
  16. SIMVASTATIN [Concomitant]
     Active Substance: SIMVASTATIN
  17. BUSPIRONE HCL [Concomitant]
     Active Substance: BUSPIRONE HYDROCHLORIDE
  18. CALCIUM CARBONATE\VITAMIN D [Concomitant]
     Active Substance: CALCIUM CARBONATE\VITAMIN D
  19. DULOXETINE HYDROCHLORIDE [Concomitant]
     Active Substance: DULOXETINE HYDROCHLORIDE
  20. ELMIRON [Concomitant]
     Active Substance: PENTOSAN POLYSULFATE SODIUM
  21. ESCITALOPRAM [Concomitant]
     Active Substance: ESCITALOPRAM OXALATE
  22. NADOLOL [Concomitant]
     Active Substance: NADOLOL
  23. SEROQUEL [Concomitant]
     Active Substance: QUETIAPINE FUMARATE

REACTIONS (16)
  - Endometrial ablation [Unknown]
  - Snoring [Unknown]
  - Anaesthetic complication [Unknown]
  - Migraine [Recovered/Resolved]
  - Feeling abnormal [Unknown]
  - Feeling abnormal [Recovered/Resolved]
  - Euphoric mood [Recovered/Resolved]
  - Vertigo [Recovered/Resolved]
  - Constipation [Unknown]
  - Hangover [Recovered/Resolved]
  - Somnolence [Not Recovered/Not Resolved]
  - Vomiting [Recovered/Resolved]
  - Anxiety [Recovered/Resolved]
  - Headache [Recovered/Resolved]
  - Pre-existing condition improved [Unknown]
  - Inappropriate schedule of product administration [Unknown]

NARRATIVE: CASE EVENT DATE: 20170101
